FAERS Safety Report 6657015-2 (Version None)
Quarter: 2010Q1

REPORT INFORMATION
  Report Type: 
  Country: None (occurrence: None)
  Receive Date: 20100329
  Receipt Date: 20100329
  Transmission Date: 20100710
  Serious: No
  Sender: FDA-Public Use
  Company Number: None

PATIENT
  Age: 54 Year
  Sex: Female
  Weight: 90.7194 kg

DRUGS (1)
  1. ZICAM COLD REMEDY NASAL GEL NA NA [Suspect]
     Indication: NASOPHARYNGITIS
     Dosage: 1 DOSE PER NOSTRIL ONCE NASAL
     Route: 045
     Dates: start: 20100324, end: 20100324

REACTIONS (1)
  - ANOSMIA [None]
